FAERS Safety Report 6249876-6 (Version None)
Quarter: 2009Q2

REPORT INFORMATION
  Report Type: 
  Country: None (occurrence: None)
  Receive Date: 20090629
  Receipt Date: 20090623
  Transmission Date: 20091009
  Serious: Yes (Other)
  Sender: FDA-Public Use
  Company Number: US-PFIZER INC-2003032887

PATIENT
  Sex: Female
  Weight: 76 kg

DRUGS (6)
  1. LIPITOR [Suspect]
     Dosage: 10 MG, 1X/DAY
     Route: 048
     Dates: start: 20030515, end: 20040101
  2. PLAVIX [Concomitant]
     Route: 065
  3. ASPIRIN [Concomitant]
     Route: 065
     Dates: end: 20030728
  4. AMARYL [Concomitant]
     Route: 065
  5. NORVASC [Concomitant]
     Route: 065
  6. LABETALOL HCL [Concomitant]
     Route: 065

REACTIONS (17)
  - ARTERIAL REPAIR [None]
  - ASTHENIA [None]
  - BALANCE DISORDER [None]
  - CHILLS [None]
  - CONTUSION [None]
  - DECREASED ACTIVITY [None]
  - DYSSTASIA [None]
  - FATIGUE [None]
  - GAIT DISTURBANCE [None]
  - HYPOAESTHESIA [None]
  - MEMORY IMPAIRMENT [None]
  - MUSCLE SPASMS [None]
  - MUSCULAR WEAKNESS [None]
  - NERVE INJURY [None]
  - PYREXIA [None]
  - STENT PLACEMENT [None]
  - URINARY TRACT INFECTION [None]
